FAERS Safety Report 23991719 (Version 1)
Quarter: 2024Q2

REPORT INFORMATION
  Report Type: Spontaneous
  Country: US (occurrence: US)
  Receive Date: 20240619
  Receipt Date: 20240619
  Transmission Date: 20240716
  Serious: No
  Sender: FDA-Public Use
  Company Number: US-Amphastar Pharmaceuticals, Inc.-2158331

PATIENT
  Age: 41 Year
  Sex: Female
  Weight: 91.364 kg

DRUGS (12)
  1. BAQSIMI [Suspect]
     Active Substance: GLUCAGON
     Indication: Postprandial hypoglycaemia
     Route: 045
     Dates: start: 20240321, end: 20240322
  2. BENZTROPINE [Concomitant]
     Active Substance: BENZTROPINE
  3. TRAZODONE [Concomitant]
     Active Substance: TRAZODONE HYDROCHLORIDE
  4. SUCRALFATE [Concomitant]
     Active Substance: SUCRALFATE
  5. ROSUVASTATIN [Concomitant]
     Active Substance: ROSUVASTATIN
  6. OMEPRAZOLE [Concomitant]
     Active Substance: DONEPEZIL HYDROCHLORIDE\OMEPRAZOLE\OMEPRAZOLE MAGNESIUM
  7. LITHIUM [Concomitant]
     Active Substance: LITHIUM
  8. LEVOTHYROXINE [Concomitant]
     Active Substance: LEVOTHYROXINE\LEVOTHYROXINE SODIUM
  9. HYOSCYAMINE [Concomitant]
     Active Substance: HYOSCYAMINE
  10. HYDROXYZINE [Concomitant]
     Active Substance: HYDROXYZINE HYDROCHLORIDE
  11. ESTRADIOL [Concomitant]
     Active Substance: ESTRADIOL
  12. CAPLYTA [Concomitant]
     Active Substance: LUMATEPERONE

REACTIONS (4)
  - Drug ineffective [Recovered/Resolved]
  - Headache [Recovered/Resolved]
  - Neck pain [Recovered/Resolved]
  - Administration site pain [Recovered/Resolved]

NARRATIVE: CASE EVENT DATE: 20240321
